FAERS Safety Report 6608968-X (Version None)
Quarter: 2010Q1

REPORT INFORMATION
  Report Type: 
  Country: None (occurrence: None)
  Receive Date: 20100301
  Receipt Date: 20100217
  Transmission Date: 20100710
  Serious: Yes (Other)
  Sender: FDA-Public Use
  Company Number: US-PFIZER INC-2010021267

PATIENT

DRUGS (1)
  1. GEODON [Suspect]
     Dosage: 60 MG, 2X/DAY

REACTIONS (2)
  - GALACTORRHOEA [None]
  - PITUITARY TUMOUR [None]
